FAERS Safety Report 6694295-1 (Version None)
Quarter: 2010Q2

REPORT INFORMATION
  Report Type: 
  Country: None (occurrence: None)
  Receive Date: 20100423
  Receipt Date: 20100412
  Transmission Date: 20101027
  Serious: Yes (Hospitalization, Other)
  Sender: FDA-Public Use
  Company Number: US-JNJCH-2010009144

PATIENT
  Age: 77 Year
  Sex: Female
  Weight: 63.5 kg

DRUGS (1)
  1. ROGAINE [Suspect]
     Indication: ALOPECIA
     Dosage: TEXT:1ML TWICE A DAY
     Route: 061
     Dates: start: 20100101, end: 20100322

REACTIONS (3)
  - CHEST DISCOMFORT [None]
  - HEART RATE INCREASED [None]
  - JOINT SWELLING [None]
